FAERS Safety Report 10664458 (Version 1)
Quarter: 2014Q4

REPORT INFORMATION
  Report Type: Spontaneous
  Country: US (occurrence: US)
  Receive Date: 20141219
  Receipt Date: 20141219
  Transmission Date: 20150529
  Serious: Yes (Other)
  Sender: FDA-Public Use
  Company Number: US-PFIZER INC-2014348437

PATIENT
  Age: 52 Year
  Sex: Female
  Weight: 145 kg

DRUGS (3)
  1. PROTONIX [Suspect]
     Active Substance: PANTOPRAZOLE SODIUM
     Indication: GASTROOESOPHAGEAL REFLUX DISEASE
     Dosage: 40 MG, 1X/DAY
     Dates: start: 2005
  2. SKELAXIN [Suspect]
     Active Substance: METAXALONE
     Indication: MYALGIA
     Dosage: 800 MG, 3X/DAY
     Dates: start: 2012
  3. SKELAXIN [Suspect]
     Active Substance: METAXALONE
     Indication: FIBROMYALGIA

REACTIONS (5)
  - Joint swelling [Unknown]
  - Fall [Unknown]
  - Joint injury [Unknown]
  - Arthropathy [Unknown]
  - Diabetes mellitus [Not Recovered/Not Resolved]

NARRATIVE: CASE EVENT DATE: 2008
